FAERS Safety Report 6690373-1 (Version None)
Quarter: 2010Q2

REPORT INFORMATION
  Report Type: 
  Country: None (occurrence: None)
  Receive Date: 20100421
  Receipt Date: 20100412
  Transmission Date: 20101027
  Serious: Yes (Hospitalization, Other)
  Sender: FDA-Public Use
  Company Number: US-ELI_LILLY_AND_COMPANY-US200910005987

PATIENT
  Sex: Female
  Weight: 107.94 kg

DRUGS (10)
  1. BYETTA [Suspect]
     Dosage: 5 UG, UNKNOWN
     Dates: start: 20070501
  2. BYETTA [Suspect]
     Dosage: 10 UG, UNK
     Dates: end: 20090401
  3. OMEPRAZOLE [Concomitant]
     Indication: GASTROOESOPHAGEAL REFLUX DISEASE
     Dosage: 20 MG, DAILY (1/D)
     Dates: start: 20090101, end: 20091101
  4. CYMBALTA [Concomitant]
     Indication: SEASONAL AFFECTIVE DISORDER
     Dosage: 60 MG, DAILY (1/D)
     Dates: start: 20060101, end: 20090101
  5. METFORMIN [Concomitant]
     Indication: DIABETES MELLITUS
     Dosage: 1000 MG, 2/D
  6. ALPRAZOLAM [Concomitant]
     Indication: SLEEP DISORDER
     Dosage: 1 MG, EACH EVENING
     Dates: start: 20000101
  7. ATENOLOL [Concomitant]
     Indication: HYPERTENSION
     Dosage: 50 MG, 2/D
     Dates: start: 20010101
  8. TRIAMTERENE AND HYDROCHLOROTHIAZIDE [Concomitant]
     Indication: HYPERTENSION
     Dosage: UNK, DAILY (1/D)
     Dates: start: 20010101
  9. CYCLOBENZAPRINE [Concomitant]
     Dosage: 10 MG, EACH EVENING
  10. PLAVIX [Concomitant]
     Dosage: 75 MG, DAILY (1/D)

REACTIONS (4)
  - CHEST PAIN [None]
  - DIARRHOEA [None]
  - PANCREATITIS ACUTE [None]
  - PANCREATITIS CHRONIC [None]
